FAERS Safety Report 7503512-7 (Version None)
Quarter: 2011Q2

REPORT INFORMATION
  Report Type: 
  Country: None (occurrence: None)
  Receive Date: 20110525
  Receipt Date: 20110516
  Transmission Date: 20111010
  Serious: Yes (Hospitalization, Other)
  Sender: FDA-Public Use
  Company Number: DE-ASTRAZENECA-2011SE29112

PATIENT
  Age: 66 Year
  Sex: Male

DRUGS (48)
  1. NEXIUM [Interacting]
     Route: 048
     Dates: start: 20050704, end: 20050711
  2. KETANEST S [Interacting]
     Indication: ANAESTHESIA
     Route: 042
     Dates: start: 20050702, end: 20050702
  3. KETANEST S [Interacting]
     Route: 042
     Dates: start: 20050705
  4. LORAZEPAM [Interacting]
     Route: 042
     Dates: start: 20050705
  5. HALOPERIDOL [Interacting]
     Route: 042
     Dates: start: 20050625
  6. HALOPERIDOL [Interacting]
     Route: 042
     Dates: start: 20050626
  7. HALOPERIDOL [Interacting]
     Route: 042
     Dates: start: 20050627, end: 20050730
  8. LUDIOMIL [Interacting]
     Dosage: UNKNOWN AMOUNT VIA SYRINGE PUMP
     Route: 042
     Dates: start: 20050628, end: 20050629
  9. PROMETHAZINE HCL [Interacting]
     Route: 042
     Dates: start: 20050709
  10. METOCLOPRAMIDE HCL [Interacting]
     Route: 042
     Dates: start: 20050709
  11. DORMICUM [Interacting]
     Route: 042
     Dates: start: 20050702
  12. CLORAZEPATE DIPOTASSIUM [Interacting]
     Route: 042
     Dates: start: 20050705
  13. MORPHINE [Concomitant]
     Indication: RESTLESS LEGS SYNDROME
  14. KETANEST S [Interacting]
     Route: 042
     Dates: start: 20050708
  15. CLORAZEPATE DIPOTASSIUM [Interacting]
     Route: 042
     Dates: start: 20050708
  16. ASPIRIN [Interacting]
     Route: 048
     Dates: start: 20050706
  17. CLORAZEPATE DIPOTASSIUM [Interacting]
     Route: 042
     Dates: start: 20050627
  18. LUDIOMIL [Interacting]
     Route: 048
     Dates: start: 20050711
  19. PROMETHAZINE HCL [Interacting]
     Route: 048
     Dates: start: 20050710
  20. TORSEMIDE [Interacting]
     Route: 048
     Dates: start: 20050704, end: 20050711
  21. ACETAMINOPHEN [Interacting]
     Route: 042
     Dates: start: 20050709
  22. CLORAZEPATE DIPOTASSIUM [Interacting]
     Route: 042
     Dates: start: 20050624
  23. HALOPERIDOL [Interacting]
     Route: 042
     Dates: start: 20050701
  24. HALOPERIDOL [Interacting]
     Route: 042
     Dates: start: 20050703, end: 20050704
  25. LUDIOMIL [Interacting]
     Dosage: UNKNOWN AMOUNT VIA SYRINGE PUMP
     Route: 042
     Dates: start: 20050701, end: 20050704
  26. LUDIOMIL [Interacting]
     Route: 048
     Dates: start: 20050705, end: 20050710
  27. MADOPAR [Interacting]
     Indication: RESTLESS LEGS SYNDROME
     Route: 048
     Dates: start: 20050707, end: 20050710
  28. TORSEMIDE [Interacting]
     Route: 042
     Dates: start: 20050623
  29. PROPOFOL [Interacting]
     Dosage: UNKNOWN AMOUNT VIA SYRINGE PUMP
     Route: 042
     Dates: start: 20050624, end: 20050624
  30. NEXIUM [Interacting]
     Route: 042
     Dates: start: 20050622, end: 20050703
  31. LORAZEPAM [Interacting]
     Route: 042
     Dates: start: 20050630, end: 20050701
  32. DORMICUM [Interacting]
     Indication: ANAESTHESIA
     Dosage: UNKNOWN AMOUNT VIA SYRINGE PUMP
     Route: 042
     Dates: start: 20050623, end: 20050624
  33. HALOPERIDOL [Interacting]
     Route: 042
     Dates: start: 20050702
  34. PROMETHAZINE HCL [Interacting]
     Route: 048
     Dates: start: 20050708
  35. TORSEMIDE [Interacting]
     Route: 042
     Dates: start: 20050622
  36. NOVALGIN [Interacting]
     Route: 042
     Dates: start: 20050709
  37. CIPRO [Interacting]
     Route: 042
     Dates: start: 20050709, end: 20050711
  38. PROPOFOL [Suspect]
     Indication: ANAESTHESIA
     Route: 042
     Dates: start: 20050622, end: 20050622
  39. PROPOFOL [Interacting]
     Route: 042
     Dates: start: 20050623, end: 20050623
  40. PROPOFOL [Interacting]
     Route: 042
     Dates: start: 20050625, end: 20050625
  41. LORAZEPAM [Interacting]
     Route: 042
     Dates: start: 20050709
  42. METHYLPREDNISOLONE [Interacting]
     Route: 042
     Dates: start: 20050624
  43. BUSCOPAN [Interacting]
     Route: 042
     Dates: start: 20050709
  44. CLORAZEPATE DIPOTASSIUM [Interacting]
     Route: 042
     Dates: start: 20050625
  45. CLORAZEPATE DIPOTASSIUM [Interacting]
     Route: 042
     Dates: start: 20050629, end: 20050701
  46. CLONIDINE HCL [Interacting]
     Dosage: UNKNOWN AMOUNT VIA SYRINGE PUMP
     Route: 065
     Dates: start: 20050624, end: 20050709
  47. LUDIOMIL [Interacting]
     Route: 042
     Dates: start: 20050630
  48. TORSEMIDE [Interacting]
     Route: 042
     Dates: start: 20050624, end: 20050703

REACTIONS (7)
  - DRUG ADMINISTRATION ERROR [None]
  - TRACHEOBRONCHITIS [None]
  - FALL [None]
  - CHOLECYSTECTOMY [None]
  - DISORIENTATION [None]
  - AGITATION [None]
  - DRUG INTERACTION [None]
